FAERS Safety Report 9792127 (Version 1)
Quarter: 2014Q1

REPORT INFORMATION
  Report Type: Spontaneous
  Country: RU (occurrence: RU)
  Receive Date: 20140102
  Receipt Date: 20140102
  Transmission Date: 20141002
  Serious: Yes (Other)
  Sender: FDA-Public Use
  Company Number: RU-ASTRAZENECA-2013SE93892

PATIENT
  Sex: Female

DRUGS (2)
  1. BETALOC ZOK [Suspect]
     Indication: ARRHYTHMIA
     Route: 048
     Dates: start: 2007
  2. BETALOC ZOK [Suspect]
     Indication: ARRHYTHMIA
     Route: 048
     Dates: start: 20131223, end: 20131224

REACTIONS (2)
  - Blood pressure increased [Recovered/Resolved]
  - Angina pectoris [Recovered/Resolved]
